FAERS Safety Report 8465847-3 (Version None)
Quarter: 2012Q2

REPORT INFORMATION
  Report Type: 
  Country: None (occurrence: None)
  Receive Date: 20120626
  Receipt Date: 20120618
  Transmission Date: 20120825
  Serious: Yes (Hospitalization, Disabling, Other)
  Sender: FDA-Public Use
  Company Number: GB-B.I. PHARMACEUTICALS,INC./RIDGEFIELD-2012-UK-00680UK

PATIENT
  Sex: Female
  Weight: 65 kg

DRUGS (15)
  1. PRADAXA [Suspect]
     Indication: THROMBOCYTOPENIA
  2. MAXITROL EYE DROPS [Concomitant]
     Dosage: QDS FOR 4 WEEKS
     Route: 048
  3. HYDROMOL OINTMENT [Concomitant]
     Dosage: AS REQUIRED
  4. SENNA-MINT WAF [Concomitant]
     Dosage: ONE OR TWO TO BE TAKEN AT NIGHT
  5. LANSOPRAZOLE [Concomitant]
     Dosage: 30 MG
  6. FUROSEMIDE [Concomitant]
     Dosage: 20 MG
  7. SIMVASTATIN [Concomitant]
     Dosage: 20 MG
  8. BISOPROLOL FUMARATE [Concomitant]
     Dosage: 10 MG
  9. E45 CREAM [Concomitant]
  10. PRADAXA [Suspect]
     Indication: ATRIAL FIBRILLATION
     Dosage: 220 MG
     Route: 048
     Dates: start: 20100201, end: 20120412
  11. MEMANTINE HYDROCHLORIDE [Concomitant]
     Dosage: 20 MG
  12. LACTULOSE [Concomitant]
     Dosage: 10ML UP TO X 3 DAILY (STRENGTH 3.1-3.7 G/5ML)
  13. VITAMIN CAPSULES BPC [Concomitant]
     Dosage: 2 ANZ
  14. MEMANTINE HYDROCHLORIDE [Concomitant]
     Dosage: 10 MG
  15. ACETAMINOPHEN [Concomitant]
     Dosage: 2 X 4 TIMES DAILY IF REQUIRED

REACTIONS (4)
  - ABDOMINAL PAIN [None]
  - CEREBROVASCULAR ACCIDENT [None]
  - HIP FRACTURE [None]
  - RECTAL HAEMORRHAGE [None]
